FAERS Safety Report 8605664-4 (Version None)
Quarter: 2012Q3

REPORT INFORMATION
  Report Type: 
  Country: None (occurrence: None)
  Receive Date: 20120820
  Receipt Date: 20120806
  Transmission Date: 20120928
  Serious: Yes (Death, Other)
  Sender: FDA-Public Use
  Company Number: US-ROCHE-1020716

PATIENT
  Sex: Male
  Weight: 66.738 kg

DRUGS (2)
  1. ZELBORAF [Suspect]
     Indication: PRODUCT USED FOR UNKNOWN INDICATION
     Route: 048
     Dates: start: 20111001, end: 20120701
  2. DECADRON PHOSPHATE [Concomitant]

REACTIONS (15)
  - BEDRIDDEN [None]
  - DYSGEUSIA [None]
  - SQUAMOUS CELL CARCINOMA [None]
  - DRY SKIN [None]
  - SWELLING [None]
  - SKIN PAPILLOMA [None]
  - SUNBURN [None]
  - FATIGUE [None]
  - ARTHRALGIA [None]
  - ADVERSE REACTION [None]
  - MUSCULAR WEAKNESS [None]
  - ATRIAL FIBRILLATION [None]
  - NAUSEA [None]
  - DECREASED APPETITE [None]
  - MALAISE [None]
